FAERS Safety Report 7715842-4 (Version None)
Quarter: 2011Q3

REPORT INFORMATION
  Report Type: 
  Country: None (occurrence: None)
  Receive Date: 20110829
  Receipt Date: 20110829
  Transmission Date: 20111222
  Serious: No
  Sender: FDA-Public Use
  Company Number: None

PATIENT
  Age: 30 Year
  Sex: Male
  Weight: 145.14 kg

DRUGS (1)
  1. SAPHRIS [Suspect]

REACTIONS (1)
  - TARDIVE DYSKINESIA [None]
